FAERS Safety Report 10528164 (Version 1)
Quarter: 2014Q4

REPORT INFORMATION
  Report Type: Spontaneous
  Country: SI (occurrence: SI)
  Receive Date: 20141020
  Receipt Date: 20141020
  Transmission Date: 20150528
  Serious: Yes (Hospitalization, Other)
  Sender: FDA-Public Use
  Company Number: SI-GLAXOSMITHKLINE-SI2014GSK004262

PATIENT
  Age: 86 Year
  Sex: Male

DRUGS (25)
  1. CLOMETHIAZOLE [Suspect]
     Active Substance: CLOMETHIAZOLE
  2. OMEPRAZOLE. [Concomitant]
     Active Substance: OMEPRAZOLE
     Dosage: 20 MG, UNK
  3. TICLOPIDINE [Concomitant]
     Active Substance: TICLOPIDINE
     Dosage: 250 MG, UNK
  4. HYDROXYUREA. [Concomitant]
     Active Substance: HYDROXYUREA
  5. PANTOPRAZOLE [Suspect]
     Active Substance: PANTOPRAZOLE SODIUM
     Dosage: 20 MG, UNK
  6. HALOPERIDOL. [Concomitant]
     Active Substance: HALOPERIDOL
  7. VALPROIC ACID. [Concomitant]
     Active Substance: VALPROIC ACID
     Dosage: 1000 MG, BID
  8. CARVEDILOL. [Suspect]
     Active Substance: CARVEDILOL
     Dosage: 3 MG, UNK
  9. ESCITALOPRAM [Suspect]
     Active Substance: ESCITALOPRAM OXALATE
     Indication: DEPRESSION
     Dosage: 10 MG, QD
  10. ACETYLSALICYLIC ACID [Suspect]
     Active Substance: ASPIRIN
     Dosage: 100 MG, UNK
  11. DIGOXIN. [Suspect]
     Active Substance: DIGOXIN
     Dosage: 0.1 MG, UNK
  12. CITALOPRAM [Suspect]
     Active Substance: CITALOPRAM HYDROBROMIDE
     Dosage: 60 MG, UNK
  13. AMITRIPTYLINE [Concomitant]
     Active Substance: AMITRIPTYLINE
  14. THIORIDAZINE [Concomitant]
     Active Substance: THIORIDAZINE
  15. OLANZAPINE. [Concomitant]
     Active Substance: OLANZAPINE
     Dosage: 10 MG, UNK
  16. MIDAZOLAM [Concomitant]
     Active Substance: MIDAZOLAM\MIDAZOLAM HYDROCHLORIDE
     Dosage: 7.5 MG, UNK
  17. PANTOPRAZOLE [Suspect]
     Active Substance: PANTOPRAZOLE SODIUM
     Dosage: 20 MG, UNK
  18. FOLIC ACID. [Concomitant]
     Active Substance: FOLIC ACID
  19. CARBAMAZEPINE. [Concomitant]
     Active Substance: CARBAMAZEPINE
     Dosage: 800 MG, BID
  20. MIANSERIN [Concomitant]
     Active Substance: MIANSERIN
     Dosage: 30 MG, UNK
  21. QUETIAPINE [Concomitant]
     Active Substance: QUETIAPINE
     Dosage: 500 MG, UNK
  22. FLUFENAZINE [Concomitant]
  23. HYDROXYUREA. [Suspect]
     Active Substance: HYDROXYUREA
     Dosage: 100 MG, BID
  24. IRON [Suspect]
     Active Substance: IRON
     Dosage: 200 MG, UNK
  25. LAMOTRIGINE. [Concomitant]
     Active Substance: LAMOTRIGINE
     Dosage: 400 MG, UNK

REACTIONS (10)
  - Delirium [Unknown]
  - Restlessness [Unknown]
  - Aggression [Unknown]
  - Cognitive disorder [Unknown]
  - Anxiety [Unknown]
  - Insomnia [Unknown]
  - Disorientation [Unknown]
  - Hallucination, visual [Unknown]
  - Fear [Unknown]
  - Psychomotor hyperactivity [Unknown]
